FAERS Safety Report 10028594 (Version 1)
Quarter: 2014Q1

REPORT INFORMATION
  Report Type: Spontaneous
  Country: US (occurrence: US)
  Receive Date: 20140321
  Receipt Date: 20140321
  Transmission Date: 20141002
  Serious: Yes (Death)
  Sender: FDA-Public Use
  Company Number: US-GLAXOSMITHKLINE-A1065403A

PATIENT
  Age: 79 Year
  Sex: Male

DRUGS (2)
  1. COREG [Suspect]
     Indication: PRODUCT USED FOR UNKNOWN INDICATION
     Dosage: 12.5MG UNKNOWN
     Route: 048
  2. UNKNOWN [Concomitant]

REACTIONS (1)
  - Accident at work [Fatal]
